FAERS Safety Report 8383956-4 (Version None)
Quarter: 2012Q2

REPORT INFORMATION
  Report Type: 
  Country: None (occurrence: None)
  Receive Date: 20120524
  Receipt Date: 20120517
  Transmission Date: 20120825
  Serious: Yes (Hospitalization, Other)
  Sender: FDA-Public Use
  Company Number: US-ABBOTT-12P-163-0932011-00

PATIENT
  Age: 41 Year
  Sex: Male

DRUGS (1)
  1. HUMIRA [Suspect]
     Indication: CROHN'S DISEASE
     Dates: start: 20120212

REACTIONS (9)
  - CHILLS [None]
  - CHEST DISCOMFORT [None]
  - CROHN'S DISEASE [None]
  - RESTLESS LEGS SYNDROME [None]
  - PAIN [None]
  - DRUG DOSE OMISSION [None]
  - MALAISE [None]
  - INFLUENZA LIKE ILLNESS [None]
  - INTESTINAL PERFORATION [None]
